FAERS Safety Report 5794277-8 (Version None)
Quarter: 2008Q2

REPORT INFORMATION
  Report Type: 
  Country: None (occurrence: None)
  Receive Date: 20080627
  Receipt Date: 20080618
  Transmission Date: 20081010
  Serious: Yes (Hospitalization)
  Sender: FDA-Public Use
  Company Number: ES-ABBOTT-08P-144-0459019-00

PATIENT
  Age: 40 Year
  Sex: Male

DRUGS (3)
  1. NORVIR [Suspect]
     Indication: HIV INFECTION
     Route: 048
     Dates: start: 20080422, end: 20080422
  2. TELZIR 700 MG [Suspect]
     Indication: HIV INFECTION
     Dosage: 12 GRAMS, DAILY
     Route: 048
     Dates: start: 20080422, end: 20080422
  3. EMTRICITABINE [Suspect]
     Indication: HIV INFECTION
     Dosage: 12 TABLETS, DAILY
     Route: 048
     Dates: start: 20080422, end: 20080422

REACTIONS (2)
  - HEPATOTOXICITY [None]
  - SUICIDE ATTEMPT [None]
